FAERS Safety Report 10426200 (Version 2)
Quarter: 2014Q3

REPORT INFORMATION
  Report Type: Spontaneous
  Country: IT (occurrence: IT)
  Receive Date: 20140903
  Receipt Date: 20140915
  Transmission Date: 20150326
  Serious: Yes (Death, Life-Threatening, Hospitalization, Disabling, Other)
  Sender: FDA-Public Use
  Company Number: IT-009507513-1409ITA000566

PATIENT
  Age: 58 Year
  Sex: Male
  Weight: 54 kg

DRUGS (7)
  1. TEMODAL [Suspect]
     Active Substance: TEMOZOLOMIDE
     Indication: MALIGNANT PITUITARY TUMOUR
     Dosage: 160 MG/M2 (270 MG, QD), DAILY FOR 5 DAYS
     Route: 048
     Dates: start: 20100624, end: 20100628
  2. EUTIROX [Concomitant]
     Active Substance: LEVOTHYROXINE SODIUM
     Indication: HYPOTHYROIDISM
     Dosage: 100 DF, QD
     Route: 048
     Dates: start: 2004
  3. FLORINEF ACETATE [Concomitant]
     Active Substance: FLUDROCORTISONE ACETATE
     Indication: ADRENAL INSUFFICIENCY
     Dosage: 0.1 MG, QD
     Route: 048
     Dates: start: 2004
  4. PERIDON [Concomitant]
     Active Substance: DOMPERIDONE
     Indication: DYSPEPSIA
     Dosage: 3 CAPSULES, QD
     Route: 048
     Dates: start: 2008
  5. PANTOPRAZOLE [Concomitant]
     Active Substance: PANTOPRAZOLE SODIUM
     Indication: GASTRITIS
     Dosage: 20 MG, QD
     Route: 048
     Dates: start: 2008
  6. CRESTOR [Concomitant]
     Active Substance: ROSUVASTATIN CALCIUM
     Indication: DYSLIPIDAEMIA
     Dosage: 1 CAPSULE, QD
     Route: 048
     Dates: start: 2010
  7. MINIRIN (DESMOPRESSIN ACETATE) [Concomitant]
     Indication: DIABETES INSIPIDUS
     Dosage: 60 MICROGRAM, QD
     Route: 048
     Dates: start: 2004

REACTIONS (6)
  - Thrombocytopenia [Fatal]
  - Multi-organ failure [Fatal]
  - Headache [Recovered/Resolved]
  - Nuchal rigidity [Recovered/Resolved]
  - Blindness [Recovered/Resolved]
  - Cerebral haemorrhage [Fatal]

NARRATIVE: CASE EVENT DATE: 20140721
